FAERS Safety Report 4443871-5 (Version None)
Quarter: 2004Q3

REPORT INFORMATION
  Report Type: 
  Country: None (occurrence: None)
  Receive Date: 20040908
  Receipt Date: 20040903
  Transmission Date: 20050211
  Serious: Yes (Other)
  Sender: FDA-Public Use
  Company Number: PHBS2004CH11673

PATIENT
  Age: 76 Year
  Sex: Female

DRUGS (6)
  1. LEPONEX [Suspect]
     Indication: SCHIZOPHRENIA
     Dosage: 300 MG/D
     Route: 065
     Dates: start: 20030901
  2. NOZINAN [Suspect]
     Indication: ANXIETY
     Route: 065
     Dates: start: 20040120
  3. ASPIRIN [Concomitant]
     Dosage: 100 MG/D
     Route: 065
  4. DOLPRONE [Concomitant]
     Dosage: 2000 MG/D
     Route: 065
  5. PANTOPRAZOLE SODIUM [Concomitant]
     Dosage: 40 MG/D
     Route: 065
  6. STILNOX [Concomitant]
     Dosage: 10 MG/D
     Route: 065

REACTIONS (9)
  - DIARRHOEA [None]
  - DRUG INTERACTION [None]
  - DYSPHAGIA [None]
  - GAIT DISTURBANCE [None]
  - HYPERREFLEXIA [None]
  - MYOCLONUS [None]
  - SEROTONIN SYNDROME [None]
  - SPEECH DISORDER [None]
  - TREMOR [None]
